FAERS Safety Report 10257438 (Version 1)
Quarter: 2014Q2

REPORT INFORMATION
  Report Type: Spontaneous
  Country: US (occurrence: None)
  Receive Date: 20140623
  Receipt Date: 20140623
  Transmission Date: 20141212
  Serious: Yes (Death, Hospitalization)
  Sender: FDA-Public Use
  Company Number: None

PATIENT
  Age: 59 Year
  Sex: Male
  Weight: 103 kg

DRUGS (2)
  1. CYTARABINE [Suspect]
     Dates: end: 20140502
  2. IDARUBICIN [Suspect]
     Dates: end: 20140501

REACTIONS (2)
  - Cardiac tamponade [None]
  - Pulmonary oedema [None]
